FAERS Safety Report 4855758-4 (Version None)
Quarter: 2005Q4

REPORT INFORMATION
  Report Type: 
  Country: None (occurrence: None)
  Receive Date: 20051216
  Receipt Date: 20051005
  Transmission Date: 20060501
  Serious: Yes (Hospitalization)
  Sender: FDA-Public Use
  Company Number: US-MERCK-0510USA04021

PATIENT
  Age: 71 Year
  Sex: Female
  Weight: 77 kg

DRUGS (2)
  1. VIOXX [Suspect]
     Indication: OSTEOARTHRITIS
     Route: 048
     Dates: start: 20020101, end: 20040101
  2. FOSAMAX [Concomitant]
     Route: 065

REACTIONS (30)
  - ABDOMINAL PAIN [None]
  - ANAEMIA [None]
  - ARRHYTHMIA [None]
  - BILE DUCT STONE [None]
  - BRADYCARDIA [None]
  - CEREBROVASCULAR ACCIDENT [None]
  - CHEST PAIN [None]
  - CHOLECYSTECTOMY [None]
  - CORONARY ARTERY DISEASE [None]
  - DRUG TOXICITY [None]
  - DYSPNOEA [None]
  - GASTRIC ULCER [None]
  - GASTROOESOPHAGEAL REFLUX DISEASE [None]
  - HEPATIC ENZYME INCREASED [None]
  - HYPERLIPIDAEMIA [None]
  - HYPERTENSION [None]
  - HYPOTHYROIDISM [None]
  - MUSCULOSKELETAL DISCOMFORT [None]
  - OSTEOARTHRITIS [None]
  - PALPITATIONS [None]
  - PANCYTOPENIA [None]
  - PEPTIC ULCER [None]
  - SHOULDER PAIN [None]
  - SICK SINUS SYNDROME [None]
  - SKIN LACERATION [None]
  - SKIN ULCER [None]
  - STRESS INCONTINENCE [None]
  - SUPRAVENTRICULAR TACHYCARDIA [None]
  - UPPER GASTROINTESTINAL HAEMORRHAGE [None]
  - VENOUS INSUFFICIENCY [None]
